FAERS Safety Report 12201529 (Version 1)
Quarter: 2016Q1

REPORT INFORMATION
  Report Type: Spontaneous
  Country: US (occurrence: US)
  Receive Date: 20160322
  Receipt Date: 20160322
  Transmission Date: 20160526
  Serious: No
  Sender: FDA-Public Use
  Company Number: US-SA-2015SA168107

PATIENT
  Age: 79 Year
  Sex: Female

DRUGS (2)
  1. NASACORT ALLERGY 24HR [Suspect]
     Active Substance: TRIAMCINOLONE ACETONIDE
     Indication: HOUSE DUST ALLERGY
     Dosage: ?DOSE: 1 SQUIRT/ NOSTRIL
     Route: 045
  2. NASACORT ALLERGY 24HR [Suspect]
     Active Substance: TRIAMCINOLONE ACETONIDE
     Indication: HOUSE DUST ALLERGY
     Dosage: START DATE: 2 MONTH?DOSE: 2 SQUIRT/ NOSTRIL
     Route: 045

REACTIONS (1)
  - Therapeutic response decreased [Unknown]
